FAERS Safety Report 16091233 (Version 1)
Quarter: 2019Q1

REPORT INFORMATION
  Report Type: Spontaneous
  Country: DE (occurrence: DE)
  Receive Date: 20190319
  Receipt Date: 20190319
  Transmission Date: 20190418
  Serious: Yes (Other)
  Sender: FDA-Public Use
  Company Number: DE-JNJFOC-20190312670

PATIENT
  Age: 56 Year
  Sex: Male

DRUGS (3)
  1. CANDECOR [Concomitant]
     Active Substance: CANDESARTAN CILEXETIL
     Dosage: 1 TABLET DAILY
     Route: 048
     Dates: start: 20101001
  2. OMEP [Concomitant]
     Active Substance: OMEPRAZOLE
     Dosage: 2 CAPSULES DAILY
     Route: 048
  3. STELARA [Suspect]
     Active Substance: USTEKINUMAB
     Indication: CROHN^S DISEASE
     Route: 058
     Dates: start: 20180301

REACTIONS (12)
  - Muscular weakness [Unknown]
  - Dermatitis bullous [Unknown]
  - Inappropriate schedule of product administration [Unknown]
  - Off label use [Unknown]
  - Pyrexia [Unknown]
  - Disturbance in attention [Unknown]
  - Balance disorder [Unknown]
  - Night sweats [Unknown]
  - Gastric disorder [Unknown]
  - Nausea [Unknown]
  - Abdominal pain [Unknown]
  - Fatigue [Unknown]
